FAERS Safety Report 9359316 (Version 2)
Quarter: 2013Q2

REPORT INFORMATION
  Report Type: Spontaneous
  Country: GB (occurrence: GB)
  Receive Date: 20130620
  Receipt Date: 20130627
  Transmission Date: 20140414
  Serious: Yes (Hospitalization)
  Sender: FDA-Public Use
  Company Number: PHHY2013GB062479

PATIENT
  Age: 43 Year
  Sex: Female

DRUGS (6)
  1. PROPRANOLOL [Suspect]
     Indication: MIGRAINE PROPHYLAXIS
     Dosage: 80 MG, DAILY
  2. FLUCLOXACILLIN [Suspect]
     Indication: CELLULITIS
     Route: 048
  3. EPINEPHRINE [Suspect]
     Route: 030
  4. EPINEPHRINE [Suspect]
     Dosage: 0.5 ML
  5. LANSOPRAZOLE [Concomitant]
  6. FEXOFENADINE [Concomitant]

REACTIONS (10)
  - Myocardial infarction [Recovered/Resolved]
  - Chest discomfort [Recovered/Resolved]
  - Ischaemia [Recovered/Resolved]
  - Arteriospasm coronary [Recovered/Resolved]
  - Angina pectoris [Recovered/Resolved]
  - Anaphylactic reaction [Recovering/Resolving]
  - Eye swelling [Recovering/Resolving]
  - Tongue oedema [Recovering/Resolving]
  - Hypotension [Recovering/Resolving]
  - Face oedema [Recovering/Resolving]
